FAERS Safety Report 21800152 (Version 1)
Quarter: 2022Q4

REPORT INFORMATION
  Report Type: Spontaneous
  Country: GB (occurrence: None)
  Receive Date: 20221230
  Receipt Date: 20221230
  Transmission Date: 20230113
  Serious: Yes (Hospitalization, Disabling)
  Sender: FDA-Public Use
  Company Number: 2022A416239

PATIENT
  Sex: Female

DRUGS (11)
  1. DAPAGLIFLOZIN [Suspect]
     Active Substance: DAPAGLIFLOZIN
     Dosage: 10MG OD
     Route: 065
  2. ASPIRIN [Concomitant]
     Active Substance: ASPIRIN
     Dosage: 75MG DISPERSIBLE - OM
  3. ATORVASTATIN [Concomitant]
     Active Substance: ATORVASTATIN
     Dosage: 20MG - ON
  4. BISOPROLOL [Concomitant]
     Active Substance: BISOPROLOL
     Dosage: 7.5MG - OM
  5. CHOLECALCIFEROL [Concomitant]
     Active Substance: CHOLECALCIFEROL
     Dosage: 800 UNITS - OM
  6. DULOXETINE [Concomitant]
     Active Substance: DULOXETINE
     Dosage: G/R 60MG - ON
  7. FUROSEMIDE [Concomitant]
     Active Substance: FUROSEMIDE
     Indication: Cardiac failure
     Dosage: 40MG OM
  8. OMEPRAZOLE [Concomitant]
     Active Substance: OMEPRAZOLE
     Dosage: G/R 20MG - OM
  9. PREGABALIN [Concomitant]
     Active Substance: PREGABALIN
     Dosage: 50MG - OM + ON
  10. ALBUTEROL [Concomitant]
     Active Substance: ALBUTEROL
  11. SODIUM BICARBONATE [Concomitant]
     Active Substance: SODIUM BICARBONATE
     Dosage: 500MG CAPSULES TDS (OM+OT+ON)

REACTIONS (1)
  - Groin abscess [Recovered/Resolved]
